FAERS Safety Report 11471964 (Version 2)
Quarter: 2015Q3

REPORT INFORMATION
  Report Type: Report from Study
  Country: BR (occurrence: BR)
  Receive Date: 20150908
  Receipt Date: 20150928
  Transmission Date: 20151125
  Serious: Yes (Hospitalization)
  Sender: FDA-Public Use
  Company Number: BR-ABBVIE-15P-020-1457049-00

PATIENT
  Age: 56 Year
  Sex: Female
  Weight: 94 kg

DRUGS (1)
  1. HUMIRA [Suspect]
     Active Substance: ADALIMUMAB
     Indication: RHEUMATOID ARTHRITIS
     Route: 058
     Dates: start: 20140430, end: 201508

REACTIONS (6)
  - Ascites [Unknown]
  - Pneumonia [Unknown]
  - Tuberculosis [Not Recovered/Not Resolved]
  - Hepatic atrophy [Unknown]
  - Liver disorder [Unknown]
  - Hepatitis [Unknown]

NARRATIVE: CASE EVENT DATE: 20150914
